FAERS Safety Report 5531117-6 (Version None)
Quarter: 2007Q4

REPORT INFORMATION
  Report Type: 
  Country: None (occurrence: None)
  Receive Date: 20071130
  Receipt Date: 20071119
  Transmission Date: 20080405
  Serious: Yes (Other)
  Sender: FDA-Public Use
  Company Number: US-PFIZER INC-2007098046

PATIENT
  Sex: Male
  Weight: 99.8 kg

DRUGS (2)
  1. DILANTIN [Suspect]
     Indication: CONVULSION
     Route: 048
  2. PHENYTOIN SODIUM [Suspect]
     Indication: CONVULSION
     Route: 048

REACTIONS (2)
  - DEPRESSION [None]
  - GRAND MAL CONVULSION [None]
